FAERS Safety Report 4707692-8 (Version None)
Quarter: 2005Q2

REPORT INFORMATION
  Report Type: 
  Country: None (occurrence: None)
  Receive Date: 20050629
  Receipt Date: 20050302
  Transmission Date: 20051028
  Serious: No
  Sender: FDA-Public Use
  Company Number: 05P-163-0292570-00

PATIENT
  Age: 63 Year
  Sex: Female
  Weight: 58.9676 kg

DRUGS (9)
  1. HUMIRA [Suspect]
     Indication: RHEUMATOID ARTHRITIS
     Dosage: 40 MG, 1 IN 2 WK, SUBCUTANEOUS
     Route: 058
     Dates: start: 20050218
  2. ISONIAZID [Concomitant]
  3. PYRIDOXINE HYDROCHLORIDE [Concomitant]
  4. SIMVASTATIN [Concomitant]
  5. CELECOXIB [Concomitant]
  6. ASPIRIN [Concomitant]
  7. ESTROGENS CONJUGATED [Concomitant]
  8. MULTI-VITAMINS [Concomitant]
  9. ACETAMINOPHEN [Concomitant]

REACTIONS (3)
  - COUGH [None]
  - PHARYNGOLARYNGEAL PAIN [None]
  - SNEEZING [None]
